FAERS Safety Report 15891876 (Version 1)
Quarter: 2019Q1

REPORT INFORMATION
  Report Type: Other
  Country: None (occurrence: GB)
  Receive Date: 20190130
  Receipt Date: 20190130
  Transmission Date: 20190417
  Serious: Yes (Other)
  Sender: FDA-Public Use
  Company Number: GB-LABORATOIRE HRA PHARMA-2061955

PATIENT
  Age: 18 Year
  Sex: Female
  Weight: 78 kg

DRUGS (2)
  1. SERTRALINE [Concomitant]
     Active Substance: SERTRALINE HYDROCHLORIDE
  2. ELLA [Suspect]
     Active Substance: ULIPRISTAL ACETATE
     Indication: POST COITAL CONTRACEPTION

REACTIONS (5)
  - Drug ineffective [None]
  - Abortion spontaneous [None]
  - Loss of consciousness [None]
  - Unintended pregnancy [None]
  - Vaginal haemorrhage [None]
